FAERS Safety Report 17159318 (Version 1)
Quarter: 2019Q4

REPORT INFORMATION
  Report Type: Spontaneous
  Country: US (occurrence: US)
  Receive Date: 20191216
  Receipt Date: 20191216
  Transmission Date: 20200122
  Serious: No
  Sender: FDA-Public Use
  Company Number: US-ALKERMES INC.-ALK-2019-006001

PATIENT
  Age: 30 Year
  Sex: Male
  Weight: 86.17 kg

DRUGS (3)
  1. ARISTADA [Suspect]
     Active Substance: ARIPIPRAZOLE LAUROXIL
     Dosage: 1064 MG, Q2MO
     Route: 030
     Dates: start: 2019, end: 2019
  2. ARISTADA [Suspect]
     Active Substance: ARIPIPRAZOLE LAUROXIL
     Indication: SCHIZOPHRENIA
     Dosage: 882 MG, QMO
     Route: 030
     Dates: start: 201911
  3. ARISTADA [Suspect]
     Active Substance: ARIPIPRAZOLE LAUROXIL
     Dosage: 1064 MG, Q2MO
     Route: 030
     Dates: start: 201908, end: 201908

REACTIONS (16)
  - Mental impairment [Not Recovered/Not Resolved]
  - Hallucination, visual [Not Recovered/Not Resolved]
  - Reading disorder [Not Recovered/Not Resolved]
  - Akathisia [Not Recovered/Not Resolved]
  - Gambling disorder [Not Recovered/Not Resolved]
  - Feeling drunk [Not Recovered/Not Resolved]
  - Disturbance in attention [Not Recovered/Not Resolved]
  - Body temperature increased [Not Recovered/Not Resolved]
  - Musculoskeletal discomfort [Not Recovered/Not Resolved]
  - Confusional state [Not Recovered/Not Resolved]
  - Memory impairment [Not Recovered/Not Resolved]
  - Injection site ulcer [Not Recovered/Not Resolved]
  - Restless legs syndrome [Not Recovered/Not Resolved]
  - Psychotic disorder [Not Recovered/Not Resolved]
  - Paranoia [Not Recovered/Not Resolved]
  - Euphoric mood [Not Recovered/Not Resolved]

NARRATIVE: CASE EVENT DATE: 2019
